FAERS Safety Report 6630402-4 (Version None)
Quarter: 2010Q1

REPORT INFORMATION
  Report Type: 
  Country: None (occurrence: None)
  Receive Date: 20100311
  Receipt Date: 20090618
  Transmission Date: 20100710
  Serious: No
  Sender: FDA-Public Use
  Company Number: US-BIOGENIDEC-2009BI018742

PATIENT
  Sex: Female

DRUGS (4)
  1. AVONEX [Suspect]
     Indication: MULTIPLE SCLEROSIS
     Route: 030
     Dates: start: 20080701
  2. XANAX [Concomitant]
     Indication: ANXIETY
     Route: 048
  3. HYDROCODONE [Concomitant]
     Indication: ARTHRALGIA
     Route: 048
  4. HYDROCODONE [Concomitant]
     Indication: HEADACHE
     Route: 048

REACTIONS (7)
  - ARTHRALGIA [None]
  - DIARRHOEA [None]
  - GAIT DISTURBANCE [None]
  - HEADACHE [None]
  - HYPERACUSIS [None]
  - MULTIPLE SCLEROSIS [None]
  - TEMPERATURE INTOLERANCE [None]
